FAERS Safety Report 23560029 (Version 5)
Quarter: 2024Q3

REPORT INFORMATION
  Report Type: Report from Study
  Country: CA (occurrence: CA)
  Receive Date: 20240223
  Receipt Date: 20240718
  Transmission Date: 20241017
  Serious: Yes (Hospitalization, Other)
  Sender: TAKEDA
  Company Number: CA-TAKEDA-2024TUS015721

PATIENT
  Age: 57 Year
  Sex: Male

DRUGS (6)
  1. VEDOLIZUMAB [Suspect]
     Active Substance: VEDOLIZUMAB
     Indication: Colitis ulcerative
     Dosage: 300 MILLIGRAM
     Route: 042
     Dates: start: 20240207
  2. VEDOLIZUMAB [Suspect]
     Active Substance: VEDOLIZUMAB
     Dosage: 300 MILLIGRAM, Q4WEEKS
     Route: 042
     Dates: start: 20240626
  3. ASACOL [Concomitant]
     Active Substance: MESALAMINE
     Dosage: 1600 MILLIGRAM, BID
     Dates: start: 2012
  4. Salofalk [Concomitant]
     Dosage: 1000 MILLIGRAM, QD
     Dates: start: 20231219
  5. Cortiment [Concomitant]
     Dosage: 9 MILLIGRAM, QD
     Dates: start: 20240104
  6. PREDNISONE [Concomitant]
     Active Substance: PREDNISONE
     Dosage: 40 MILLIGRAM, QD
     Dates: start: 2023

REACTIONS (5)
  - Colitis ulcerative [Unknown]
  - Mental fatigue [Unknown]
  - Feeling abnormal [Unknown]
  - Off label use [Unknown]
  - Fatigue [Unknown]

NARRATIVE: CASE EVENT DATE: 20240626
